FAERS Safety Report 7767825-6 (Version None)
Quarter: 2011Q3

REPORT INFORMATION
  Report Type: 
  Country: None (occurrence: None)
  Receive Date: 20110922
  Receipt Date: 20100917
  Transmission Date: 20111222
  Serious: No
  Sender: FDA-Public Use
  Company Number: US-ASTRAZENECA-2010SE44200

PATIENT
  Sex: Male
  Weight: 86.2 kg

DRUGS (1)
  1. SEROQUEL [Suspect]
     Indication: BIPOLAR DISORDER
     Route: 048
     Dates: start: 20080101

REACTIONS (6)
  - NAUSEA [None]
  - GAIT DISTURBANCE [None]
  - DRUG DOSE OMISSION [None]
  - VOMITING [None]
  - ABNORMAL BEHAVIOUR [None]
  - DIARRHOEA [None]
